FAERS Safety Report 22065088 (Version 2)
Quarter: 2023Q1

REPORT INFORMATION
  Report Type: Spontaneous
  Country: HN (occurrence: HN)
  Receive Date: 20230306
  Receipt Date: 20230316
  Transmission Date: 20230418
  Serious: Yes (Other)
  Sender: FDA-Public Use
  Company Number: HN-PFIZER INC-PV202300040788

PATIENT
  Age: 66 Year
  Sex: Female

DRUGS (2)
  1. IBRANCE [Suspect]
     Active Substance: PALBOCICLIB
     Dosage: 125 MG, 1X/DAY (RESTS FOR 8 TO 10 DAYS AND STARTS AGAIN)
     Dates: start: 2021
  2. VENLAFAXINE HYDROCHLORIDE [Concomitant]
     Active Substance: VENLAFAXINE HYDROCHLORIDE
     Indication: Anxiety

REACTIONS (13)
  - Angina unstable [Unknown]
  - Syncope [Unknown]
  - Illness [Unknown]
  - Blood glucose increased [Unknown]
  - Hypertension [Unknown]
  - Anxiety [Unknown]
  - Asthenia [Unknown]
  - Pain in extremity [Unknown]
  - Vasodilatation [Unknown]
  - Stress [Unknown]
  - Feeling abnormal [Unknown]
  - Fall [Unknown]
  - Off label use [Unknown]

NARRATIVE: CASE EVENT DATE: 20230228
